FAERS Safety Report 18615235 (Version 1)
Quarter: 2020Q4

REPORT INFORMATION
  Report Type: Other
  Country: US (occurrence: US)
  Receive Date: 20201215
  Receipt Date: 20201215
  Transmission Date: 20210114
  Serious: Yes (Hospitalization)
  Sender: FDA-Public Use
  Company Number: US-ROCHE-2730800

PATIENT
  Sex: Female

DRUGS (22)
  1. ROZLYTREK [Suspect]
     Active Substance: ENTRECTINIB
     Indication: LUNG NEOPLASM MALIGNANT
     Dosage: TAKE 3 CAPSULE(S) BY MOUTH DAILY
     Route: 048
     Dates: start: 20200423
  2. CETRIZINE [Concomitant]
     Active Substance: CETIRIZINE HYDROCHLORIDE
     Indication: RHINORRHOEA
     Dosage: 1-2 TAB DAILY AS NEEDED FOR RUNNY NOSE
     Route: 048
     Dates: start: 20200326
  3. FOLIC ACID. [Concomitant]
     Active Substance: FOLIC ACID
     Route: 048
     Dates: start: 20200302
  4. GABAPENTIN. [Concomitant]
     Active Substance: GABAPENTIN
     Indication: NEUROPATHY PERIPHERAL
     Dosage: 1 CAP BY MOUTH NIGHTLY AS NEEDED
     Route: 048
     Dates: start: 20200320
  5. LIDOCAINE;PRILOCAINE [Concomitant]
     Dates: start: 20200424
  6. ONDANSETRON [Concomitant]
     Active Substance: ONDANSETRON
     Indication: NAUSEA
     Route: 048
     Dates: start: 20200317
  7. DIAZEPAM. [Concomitant]
     Active Substance: DIAZEPAM
     Dosage: TAKE 1 TAB 30 MIN BEFORE MRI
     Route: 048
     Dates: start: 20200312
  8. ERGOCALCIFEROL. [Concomitant]
     Active Substance: ERGOCALCIFEROL
     Dosage: 1 CAP BY MOUTH EVERY 7DAYS
     Route: 048
     Dates: start: 20200403
  9. HUMALOG KWIKPEN [Concomitant]
     Active Substance: INSULIN LISPRO
     Route: 058
     Dates: start: 20200422
  10. DEXAMETHASONE. [Concomitant]
     Active Substance: DEXAMETHASONE
     Dosage: 1 TAB BY MOUTH 2 TIMES A DAY WITH FOOD THE DAY BEFORE CHEMO THEARPY AND FOR TWO?DAYS AFTER CHEMOTHER
     Route: 048
     Dates: start: 20200327
  11. OLMESARTAN [Concomitant]
     Active Substance: OLMESARTAN
     Route: 048
     Dates: start: 20200403
  12. BENZONATATE. [Concomitant]
     Active Substance: BENZONATATE
     Route: 048
     Dates: start: 20200326, end: 20200326
  13. DIAZEPAM. [Concomitant]
     Active Substance: DIAZEPAM
     Indication: ANXIETY
     Dosage: 1 TAB BY MOUTH ONCE DAILY AS NEEDED
     Route: 048
     Dates: start: 20190620
  14. ESCITALOPRAM OXALATE. [Concomitant]
     Active Substance: ESCITALOPRAM OXALATE
     Route: 048
     Dates: start: 20191220
  15. FLUCONAZOLE. [Concomitant]
     Active Substance: FLUCONAZOLE
     Indication: VULVOVAGINAL PRURITUS
     Dosage: 1 TAB 100 MG BY MOUTH DAILY AS NEEDED
     Route: 048
     Dates: start: 20200403, end: 20200503
  16. LEVEMIR [Concomitant]
     Active Substance: INSULIN DETEMIR
     Route: 058
     Dates: start: 20200422
  17. ASPIRIN. [Concomitant]
     Active Substance: ASPIRIN
     Route: 048
     Dates: start: 20180310
  18. BISACODYL. [Concomitant]
     Active Substance: BISACODYL
     Indication: CONSTIPATION
     Dosage: TAKE 5 MG BY MOUTH DAILY AS NEEDED
     Route: 048
  19. FLUTICASONE PROPIONATE. [Concomitant]
     Active Substance: FLUTICASONE PROPIONATE
     Dosage: 2 SPRAY IN EACH NOSTRIL ONCE DAILY
     Route: 045
     Dates: start: 20200403
  20. HYDROCHLOROTHIAZIDE. [Concomitant]
     Active Substance: HYDROCHLOROTHIAZIDE
     Indication: SWELLING
     Dosage: 1 CAP BY MOUTH DAILY AS NEEDED
     Route: 048
     Dates: start: 20200212, end: 20200326
  21. ATORVASTATIN [Concomitant]
     Active Substance: ATORVASTATIN
     Dosage: 1 TAB 40 MG BY MOUTH ONCE DAILY
     Route: 048
     Dates: start: 20200403
  22. CARBOXYMETHYLCELLULOSE [Concomitant]
     Active Substance: CARBOXYMETHYLCELLULOSE
     Dosage: 1 DROP 3 TIMES DAILY AS NEEDED

REACTIONS (1)
  - Cerebrovascular accident [Unknown]
